FAERS Safety Report 24800704 (Version 1)
Quarter: 2025Q1

REPORT INFORMATION
  Report Type: Report from Study
  Country: US (occurrence: US)
  Receive Date: 20250102
  Receipt Date: 20250102
  Transmission Date: 20250408
  Serious: Yes (Other)
  Sender: SANOFI AVENTIS
  Company Number: US-DialogSolutions-SAAVPROD-PI724492-C5

PATIENT
  Age: 37 Year
  Sex: Male

DRUGS (2)
  1. SEVELAMER HYDROCHLORIDE [Suspect]
     Active Substance: SEVELAMER HYDROCHLORIDE
     Indication: Acute kidney injury
  2. HEPARIN [Concomitant]
     Active Substance: HEPARIN SODIUM
     Route: 041

REACTIONS (5)
  - Pneumoperitoneum [Unknown]
  - Large intestine perforation [Unknown]
  - Melaena [Unknown]
  - Ulcer [Unknown]
  - Crystal deposit intestine [Unknown]
